FAERS Safety Report 9065837 (Version 1)
Quarter: 2013Q1

REPORT INFORMATION
  Report Type: Report from Study
  Country: US (occurrence: US)
  Receive Date: 20130130
  Receipt Date: 20130130
  Transmission Date: 20140127
  Serious: No
  Sender: FDA-Public Use
  Company Number: US-ABBOTT-12P-163-0977550-00

PATIENT
  Sex: Female
  Weight: 95.34 kg

DRUGS (2)
  1. HUMIRA [Suspect]
     Indication: PSORIATIC ARTHROPATHY
     Route: 058
     Dates: start: 20101013, end: 20110808
  2. HUMIRA [Suspect]
     Route: 058
     Dates: start: 20120511, end: 20120810

REACTIONS (2)
  - Drug ineffective [Not Recovered/Not Resolved]
  - Suppressed lactation [Not Recovered/Not Resolved]
